FAERS Safety Report 8805217 (Version 1)
Quarter: 2012Q4

REPORT INFORMATION
  Report Type: Spontaneous
  Country: US (occurrence: None)
  Receive Date: 20120919
  Receipt Date: 20120919
  Transmission Date: 20130627
  Serious: Yes (Hospitalization, Other)
  Sender: FDA-Public Use
  Company Number: None

PATIENT
  Age: 17 Year
  Sex: Female
  Weight: 54.43 kg

DRUGS (1)
  1. DIVALPROEX SODIUM [Suspect]
     Indication: SEIZURES
     Dosage: ER
     Route: 048
     Dates: start: 201204

REACTIONS (2)
  - Convulsion [None]
  - Product substitution issue [None]
